FAERS Safety Report 13072434 (Version 1)
Quarter: 2016Q4

REPORT INFORMATION
  Report Type: Report from Study
  Country: US (occurrence: US)
  Receive Date: 20161229
  Receipt Date: 20161229
  Transmission Date: 20170207
  Serious: Yes (Hospitalization)
  Sender: FDA-Public Use
  Company Number: US-ROCHE-1870635

PATIENT
  Age: 70 Year
  Sex: Male
  Weight: 71.28 kg

DRUGS (6)
  1. PRILOSEC [Concomitant]
     Active Substance: OMEPRAZOLE MAGNESIUM
     Dosage: YES
     Route: 065
     Dates: start: 20160518
  2. ACYCLOVIR. [Concomitant]
     Active Substance: ACYCLOVIR
     Dosage: YES
     Route: 065
     Dates: start: 201605
  3. VENCLEXTA [Suspect]
     Active Substance: VENETOCLAX
     Indication: MANTLE CELL LYMPHOMA
     Dosage: NO
     Route: 048
     Dates: start: 201605, end: 20161208
  4. ALLOPURINOL. [Concomitant]
     Active Substance: ALLOPURINOL
     Dosage: ONGOING : YES
     Route: 065
     Dates: start: 201605
  5. CLONAZEPAM. [Suspect]
     Active Substance: CLONAZEPAM
     Indication: AGITATION
     Dosage: ONGOING: YES
     Route: 048
     Dates: start: 20160518
  6. PREDNISONE. [Concomitant]
     Active Substance: PREDNISONE
     Dosage: ONGOING:YES
     Route: 065

REACTIONS (5)
  - White blood cell count decreased [Not Recovered/Not Resolved]
  - Bone marrow transplant [Not Recovered/Not Resolved]
  - Glaucoma [Not Recovered/Not Resolved]
  - Lymphoma [Not Recovered/Not Resolved]
  - Asthenia [Not Recovered/Not Resolved]

NARRATIVE: CASE EVENT DATE: 201605
